FAERS Safety Report 9777325 (Version 2)
Quarter: 2013Q4

REPORT INFORMATION
  Report Type: Spontaneous
  Country: US (occurrence: US)
  Receive Date: 20131221
  Receipt Date: 20131221
  Transmission Date: 20140711
  Serious: Yes (Other)
  Sender: FDA-Public Use
  Company Number: US-UCBSA-103153

PATIENT
  Age: 59 Year
  Sex: Female
  Weight: 73.93 kg

DRUGS (4)
  1. VIMPAT [Suspect]
     Indication: CONVULSION
  2. VIMPAT [Suspect]
     Indication: CONVULSION
     Route: 048
  3. VIMPAT [Suspect]
     Indication: CONVULSION
     Route: 048
  4. DILANTIN [Concomitant]
     Dosage: PILL

REACTIONS (6)
  - Clavicle fracture [Unknown]
  - Convulsion [Unknown]
  - Fall [Unknown]
  - Head injury [Unknown]
  - Joint injury [Unknown]
  - Pain [Unknown]
